FAERS Safety Report 6102522-4 (Version None)
Quarter: 2009Q1

REPORT INFORMATION
  Report Type: 
  Country: None (occurrence: None)
  Receive Date: 20090304
  Receipt Date: 20080723
  Transmission Date: 20090719
  Serious: No
  Sender: FDA-Public Use
  Company Number: A0739119A

PATIENT
  Age: 63 Year
  Sex: Female

DRUGS (2)
  1. REQUIP [Suspect]
     Indication: RESTLESS LEGS SYNDROME
     Dosage: .25MG PER DAY
     Route: 048
     Dates: start: 20080701, end: 20080701
  2. NO CONCURRENT MEDICATION [Concomitant]

REACTIONS (3)
  - BALANCE DISORDER [None]
  - DRY MOUTH [None]
  - POLLAKIURIA [None]
